FAERS Safety Report 15203973 (Version 1)
Quarter: 2018Q4

REPORT INFORMATION
  Report Type: Report from Study
  Country: US (occurrence: US)
  Receive Date: 20180726
  Receipt Date: 20180726
  Transmission Date: 20190204
  Serious: Yes (Hospitalization)
  Sender: FDA-Public Use
  Company Number: PHHO2012US017572

PATIENT

DRUGS (3)
  1. TEKTURNA [Suspect]
     Active Substance: ALISKIREN HEMIFUMARATE
     Indication: CARDIOVASCULAR DISORDER
     Dosage: UNK UNK, QD
     Route: 048
  2. CARBOPLATIN. [Concomitant]
     Active Substance: CARBOPLATIN
     Indication: SQUAMOUS CELL CARCINOMA
     Dosage: UNK, TIW
     Route: 042
     Dates: start: 20120927
  3. ALISKIREN / HCTZ [Suspect]
     Active Substance: ALISKIREN\HYDROCHLOROTHIAZIDE
     Indication: CARDIOVASCULAR DISORDER
     Dosage: 300 MG, QD
     Route: 048
     Dates: start: 20100201, end: 20111221

REACTIONS (1)
  - Bacterial sepsis [Recovered/Resolved]

NARRATIVE: CASE EVENT DATE: 20121121
